FAERS Safety Report 7477922-0 (Version None)
Quarter: 2011Q2

REPORT INFORMATION
  Report Type: 
  Country: None (occurrence: None)
  Receive Date: 20110513
  Receipt Date: 20110419
  Transmission Date: 20111010
  Serious: Yes (Death, Other)
  Sender: FDA-Public Use
  Company Number: US-BAYER-200934384NA

PATIENT
  Age: 71 Year
  Sex: Female

DRUGS (9)
  1. ACETYLSALICYLIC ACID SRT [Concomitant]
  2. ACTOS [Concomitant]
  3. MOBIC [Concomitant]
     Dosage: UNK
  4. TRASYLOL [Suspect]
     Indication: CORONARY ARTERY BYPASS
     Dosage: UNK
     Dates: start: 20080104
  5. TRASYLOL [Suspect]
     Indication: ENDARTERECTOMY
  6. NIFEDIPINE [Concomitant]
  7. CLONIDINE [Concomitant]
  8. LIPITOR [Concomitant]
  9. QUINAPRIL [Concomitant]
     Dosage: UNK

REACTIONS (14)
  - RENAL INJURY [None]
  - INJURY [None]
  - DEPRESSION [None]
  - FEAR [None]
  - ANXIETY [None]
  - EMOTIONAL DISTRESS [None]
  - UNEVALUABLE EVENT [None]
  - NERVOUSNESS [None]
  - RENAL FAILURE [None]
  - PAIN [None]
  - DISABILITY [None]
  - DEATH [None]
  - MULTI-ORGAN FAILURE [None]
  - ANHEDONIA [None]
